FAERS Safety Report 5894738-7 (Version None)
Quarter: 2008Q3

REPORT INFORMATION
  Report Type: 
  Country: None (occurrence: None)
  Receive Date: 20080924
  Receipt Date: 20080630
  Transmission Date: 20090109
  Serious: No
  Sender: FDA-Public Use
  Company Number: US-ASTRAZENECA-2008UW11280

PATIENT
  Age: 34 Year
  Sex: Male
  Weight: 77.1 kg

DRUGS (1)
  1. SEROQUEL [Suspect]
     Indication: BIPOLAR DISORDER
     Route: 048

REACTIONS (6)
  - CONVULSION [None]
  - DYSKINESIA [None]
  - FATIGUE [None]
  - ILL-DEFINED DISORDER [None]
  - IRRITABILITY [None]
  - MUSCLE SPASMS [None]
